FAERS Safety Report 11448064 (Version 1)
Quarter: 2015Q3

REPORT INFORMATION
  Report Type: Spontaneous
  Country: US (occurrence: US)
  Receive Date: 20150831
  Receipt Date: 20150831
  Transmission Date: 20151125
  Serious: No
  Sender: FDA-Public Use
  Company Number: US-ELI_LILLY_AND_COMPANY-US200905005304

PATIENT
  Sex: Female

DRUGS (1)
  1. CYMBALTA [Suspect]
     Active Substance: DULOXETINE HYDROCHLORIDE
     Indication: DEPRESSION

REACTIONS (12)
  - Mastication disorder [Unknown]
  - Asthenia [Unknown]
  - Decreased appetite [Unknown]
  - Mydriasis [Unknown]
  - Fatigue [Unknown]
  - Paraesthesia [Unknown]
  - Nausea [Unknown]
  - Weight decreased [Unknown]
  - Dry mouth [Unknown]
  - Tremor [Unknown]
  - Insomnia [Unknown]
  - Hyperhidrosis [Unknown]
